FAERS Safety Report 8586655-9 (Version None)
Quarter: 2012Q3

REPORT INFORMATION
  Report Type: 
  Country: None (occurrence: None)
  Receive Date: 20120810
  Receipt Date: 20120807
  Transmission Date: 20120928
  Serious: Yes (Life-Threatening, Hospitalization)
  Sender: FDA-Public Use
  Company Number: CA-BRISTOL-MYERS SQUIBB COMPANY-16842254

PATIENT
  Age: 54 Year
  Sex: Male
  Weight: 70 kg

DRUGS (2)
  1. CARBOPLATIN [Suspect]
     Dosage: MOST RECENT DOSE ON 1AUG12
     Dates: start: 20120730
  2. PACLITAXEL [Suspect]
     Dosage: MOST RECENT DOSE ON 1AUG12
     Dates: start: 20120730

REACTIONS (2)
  - HYPOTENSION [None]
  - ASTHENIA [None]
